FAERS Safety Report 12270607 (Version 1)
Quarter: 2016Q2

REPORT INFORMATION
  Report Type: Spontaneous
  Country: US (occurrence: US)
  Receive Date: 20160415
  Receipt Date: 20160415
  Transmission Date: 20160815
  Serious: No
  Sender: FDA-Public Use
  Company Number: US-PFIZER INC-2016186120

PATIENT
  Age: 19 Year
  Sex: Male

DRUGS (1)
  1. SUNITINIB MALATE. [Suspect]
     Active Substance: SUNITINIB MALATE
     Indication: GASTROINTESTINAL STROMAL TUMOUR
     Dosage: UNK

REACTIONS (6)
  - Headache [Unknown]
  - Oedema [Unknown]
  - Gastrointestinal stromal tumour [Unknown]
  - Fatigue [Unknown]
  - Epistaxis [Unknown]
  - Disease progression [Unknown]
